FAERS Safety Report 17823513 (Version 1)
Quarter: 2020Q2

REPORT INFORMATION
  Report Type: Spontaneous
  Country: US (occurrence: US)
  Receive Date: 20200526
  Receipt Date: 20200526
  Transmission Date: 20200714
  Serious: Yes (Hospitalization, Other)
  Sender: FDA-Public Use
  Company Number: US-CIPLA LTD.-2020US03456

PATIENT

DRUGS (3)
  1. KAYEXALATE [Suspect]
     Active Substance: SODIUM POLYSTYRENE SULFONATE
     Indication: HYPERKALAEMIA
     Dosage: 30 GRAM, SINGLE
     Route: 065
  2. SEVELAMER [Suspect]
     Active Substance: SEVELAMER
     Indication: HYPERPHOSPHATAEMIA
     Dosage: 800 MILLIGRAM, TID
     Route: 065
  3. SEVELAMER [Suspect]
     Active Substance: SEVELAMER
     Dosage: 1600 MILLIGRAM, TID
     Route: 065

REACTIONS (4)
  - Hyperkalaemia [Recovered/Resolved]
  - Gastrointestinal necrosis [Unknown]
  - Renal failure [Unknown]
  - Chronic respiratory failure [Unknown]
